FAERS Safety Report 4715367-4 (Version None)
Quarter: 2005Q3

REPORT INFORMATION
  Report Type: 
  Country: None (occurrence: None)
  Receive Date: 20050715
  Receipt Date: 20050315
  Transmission Date: 20060218
  Serious: Yes (Other)
  Sender: FDA-Public Use
  Company Number: US-MERCK-0503USA03189

PATIENT
  Age: 32 Year
  Sex: Female
  Weight: 61 kg

DRUGS (9)
  1. VIOXX [Suspect]
     Indication: PAIN
     Route: 048
     Dates: start: 20030101, end: 20030101
  2. VIOXX [Suspect]
     Route: 048
     Dates: start: 20030101, end: 20030101
  3. CARBATROL [Concomitant]
     Indication: EPILEPSY
     Route: 065
  4. FENTANYL ORALET [Concomitant]
     Indication: PAIN
     Route: 065
  5. MOTRIN [Concomitant]
     Indication: PAIN
     Route: 065
     Dates: start: 19910101
  6. MIDRIN [Concomitant]
     Indication: MIGRAINE
     Route: 065
     Dates: start: 20000101
  7. MIDRIN [Concomitant]
     Indication: HEADACHE
     Route: 065
     Dates: start: 20000101
  8. TYLENOL [Concomitant]
     Route: 065
     Dates: start: 20000101
  9. DILAUDID [Concomitant]
     Route: 065
     Dates: start: 20030101

REACTIONS (9)
  - ABDOMINAL DISCOMFORT [None]
  - ABDOMINAL PAIN UPPER [None]
  - BRAIN DAMAGE [None]
  - CEREBROVASCULAR ACCIDENT [None]
  - CHRONIC OBSTRUCTIVE PULMONARY DISEASE [None]
  - DIZZINESS [None]
  - NAUSEA [None]
  - OVERDOSE [None]
  - TONSILLAR DISORDER [None]
